FAERS Safety Report 4648788-9 (Version None)
Quarter: 2005Q2

REPORT INFORMATION
  Report Type: 
  Country: None (occurrence: None)
  Receive Date: 20050429
  Receipt Date: 20050406
  Transmission Date: 20051028
  Serious: Yes (Other)
  Sender: FDA-Public Use
  Company Number: JP-MERCK-0504USA01532

PATIENT
  Age: 75 Year
  Sex: Male

DRUGS (5)
  1. PEPCID RPD [Suspect]
     Route: 048
     Dates: start: 20050225, end: 20050331
  2. PEPCID RPD [Suspect]
     Route: 048
     Dates: start: 20050401, end: 20050405
  3. VANCOMYCIN [Suspect]
     Route: 042
     Dates: start: 20050311, end: 20050322
  4. [THERAPY UNSPECIFIED] [Concomitant]
     Route: 042
     Dates: start: 20050311
  5. MADOPAR [Concomitant]
     Route: 048
     Dates: start: 20050225

REACTIONS (1)
  - RENAL IMPAIRMENT [None]
